FAERS Safety Report 9316482 (Version 1)
Quarter: 2013Q2

REPORT INFORMATION
  Report Type: Spontaneous
  Country: US (occurrence: None)
  Receive Date: 20130528
  Receipt Date: 20130528
  Transmission Date: 20140414
  Serious: Yes (Other)
  Sender: FDA-Public Use
  Company Number: None

PATIENT
  Age: 65 Year
  Sex: 0
  Weight: 108.86 kg

DRUGS (1)
  1. HYDRALAZINE [Suspect]
     Indication: HYPERTENSION
     Route: 048
     Dates: start: 20091101, end: 20130413

REACTIONS (7)
  - Arthritis [None]
  - Arthralgia [None]
  - Pelvic pain [None]
  - Decreased appetite [None]
  - Weight decreased [None]
  - Night sweats [None]
  - Cholecystectomy [None]
